FAERS Safety Report 9540792 (Version 2)
Quarter: 2014Q2

REPORT INFORMATION
  Report Type: Spontaneous
  Country: AR (occurrence: AR)
  Receive Date: 20130920
  Receipt Date: 20140408
  Transmission Date: 20141212
  Serious: Yes (Other)
  Sender: FDA-Public Use
  Company Number: AR-PFIZER INC-2013270083

PATIENT
  Age: 8 Year
  Sex: Female

DRUGS (2)
  1. GENOTROPIN [Suspect]
     Indication: HYPOPITUITARISM
     Dosage: UNK
     Dates: start: 201105
  2. GENOTROPIN [Suspect]
     Dosage: 0.1 TO 0.5 MG, 6X/WEEK
     Dates: start: 20130926

REACTIONS (2)
  - Neoplasm [Not Recovered/Not Resolved]
  - Cyst [Not Recovered/Not Resolved]
